FAERS Safety Report 6088098-9 (Version None)
Quarter: 2009Q1

REPORT INFORMATION
  Report Type: 
  Country: None (occurrence: None)
  Receive Date: 20090218
  Receipt Date: 20090203
  Transmission Date: 20090719
  Serious: Yes (Hospitalization)
  Sender: FDA-Public Use
  Company Number: 8042802

PATIENT
  Age: 35 Year
  Sex: Female

DRUGS (7)
  1. KEPPRA [Suspect]
     Indication: EPILEPSY
     Dosage: PO
     Route: 048
     Dates: start: 20081120, end: 20081223
  2. TEGRETOL [Suspect]
     Indication: EPILEPSY
     Dosage: PO
     Route: 048
     Dates: start: 20081216, end: 20081226
  3. PREVISCAN /00789001/ [Concomitant]
  4. CORTANCYL [Concomitant]
  5. DIFFU K [Concomitant]
  6. OROCAL /00108001/ [Concomitant]
  7. LUTERAN [Concomitant]

REACTIONS (3)
  - HEPATITIS [None]
  - HYPERSENSITIVITY [None]
  - RASH MORBILLIFORM [None]
